FAERS Safety Report 8369530-4 (Version None)
Quarter: 2012Q2

REPORT INFORMATION
  Report Type: 
  Country: None (occurrence: None)
  Receive Date: 20120517
  Receipt Date: 20120517
  Transmission Date: 20120825
  Serious: Yes (Other)
  Sender: FDA-Public Use
  Company Number: None

PATIENT
  Sex: Female
  Weight: 98.8842 kg

DRUGS (2)
  1. LEVOXYL [Suspect]
     Dates: start: 20101213
  2. LEVOTHYROXINE SODIUM [Suspect]
     Indication: HYPERTHYROIDISM
     Dates: start: 20070913

REACTIONS (1)
  - ANXIETY [None]
